FAERS Safety Report 4370342-7 (Version None)
Quarter: 2004Q2

REPORT INFORMATION
  Report Type: 
  Country: None (occurrence: None)
  Receive Date: 20040603
  Receipt Date: 20040319
  Transmission Date: 20050107
  Serious: Yes (Hospitalization)
  Sender: FDA-Public Use
  Company Number: US-BRISTOL-MYERS SQUIBB COMPANY-12537981

PATIENT
  Age: 43 Year
  Sex: Male

DRUGS (4)
  1. ABILIFY [Suspect]
     Indication: PARANOIA
  2. ABILIFY [Suspect]
     Indication: SCHIZOPHRENIA
  3. ABILIFY [Suspect]
     Indication: SCHIZOAFFECTIVE DISORDER
  4. ANTIDEPRESSANT [Concomitant]

REACTIONS (2)
  - DRUG INEFFECTIVE [None]
  - PANCREATITIS [None]
